FAERS Safety Report 9780368 (Version 3)
Quarter: 2015Q3

REPORT INFORMATION
  Report Type: Report from Study
  Country: BE (occurrence: BE)
  Receive Date: 20131224
  Receipt Date: 20150825
  Transmission Date: 20151125
  Serious: Yes (Hospitalization, Other)
  Sender: FDA-Public Use
  Company Number: BE-ROCHE-1324412

PATIENT
  Age: 22 Year
  Sex: Female
  Weight: 100 kg

DRUGS (2)
  1. MONTELUKAST [Concomitant]
     Active Substance: MONTELUKAST SODIUM
     Indication: ASTHMA
  2. OMALIZUMAB [Suspect]
     Active Substance: OMALIZUMAB
     Indication: ASTHMA
     Route: 058
     Dates: start: 20121122, end: 20131205

REACTIONS (8)
  - Dyspepsia [Recovered/Resolved]
  - Chest discomfort [Recovered/Resolved]
  - Skin striae [Unknown]
  - Weight increased [Recovered/Resolved]
  - Non-cardiac chest pain [Recovered/Resolved]
  - Oropharyngeal pain [Recovered/Resolved]
  - Gastrointestinal pain [Recovered/Resolved]
  - Peripheral swelling [Not Recovered/Not Resolved]

NARRATIVE: CASE EVENT DATE: 20121122
